FAERS Safety Report 6922924-3 (Version None)
Quarter: 2010Q3

REPORT INFORMATION
  Report Type: 
  Country: None (occurrence: None)
  Receive Date: 20100813
  Receipt Date: 20100804
  Transmission Date: 20110219
  Serious: Yes (Hospitalization)
  Sender: FDA-Public Use
  Company Number: PHHY2010JP46138

PATIENT
  Age: 32 Year
  Sex: Female

DRUGS (3)
  1. TEGRETOL [Suspect]
     Indication: EPILEPSY
     Dosage: 300 TO 600 MG/DAY
     Dates: start: 20010815, end: 20010826
  2. SETOUS [Concomitant]
     Dosage: 100 TO 300 MG/DAY
     Dates: start: 20010815, end: 20020115
  3. OLANZAPINE [Concomitant]
     Dosage: UNK

REACTIONS (9)
  - AGITATION [None]
  - CONCOMITANT DISEASE AGGRAVATED [None]
  - FLUSHING [None]
  - HALLUCINATION, AUDITORY [None]
  - NEGATIVISM [None]
  - PLATELET COUNT DECREASED [None]
  - PYREXIA [None]
  - THROMBOCYTOPENIC PURPURA [None]
  - WHITE BLOOD CELL COUNT DECREASED [None]
